FAERS Safety Report 17914848 (Version 1)
Quarter: 2020Q2

REPORT INFORMATION
  Report Type: Spontaneous
  Country: US (occurrence: US)
  Receive Date: 20200619
  Receipt Date: 20200619
  Transmission Date: 20200714
  Serious: No
  Sender: FDA-Public Use
  Company Number: US-SHIRE-US202020003

PATIENT
  Age: 4 Year
  Sex: Male

DRUGS (1)
  1. ELAPRASE [Suspect]
     Active Substance: IDURSULFASE
     Indication: PRODUCT USED FOR UNKNOWN INDICATION
     Dosage: UNK UNK, UNKNOWN
     Route: 050

REACTIONS (4)
  - Vomiting [Unknown]
  - Pyrexia [Unknown]
  - Infusion related reaction [Unknown]
  - Incorrect drug administration rate [Unknown]
